FAERS Safety Report 7639364-4 (Version None)
Quarter: 2011Q3

REPORT INFORMATION
  Report Type: 
  Country: None (occurrence: None)
  Receive Date: 20110722
  Receipt Date: 20110706
  Transmission Date: 20111222
  Serious: Yes (Hospitalization)
  Sender: FDA-Public Use
  Company Number: 2011MA008419

PATIENT
  Age: 67 Year
  Sex: Female

DRUGS (2)
  1. AMANTADINE HYDROCHLORIDE [Suspect]
     Indication: PARKINSONISM
     Dosage: 100 MG;QD
     Dates: start: 19990601
  2. LEVODOPA (LEVODOPA) [Suspect]
     Indication: PARKINSONISM
     Dosage: 50 MG;QD

REACTIONS (4)
  - HALLUCINATION [None]
  - MUSCULOSKELETAL STIFFNESS [None]
  - MUSCULAR WEAKNESS [None]
  - ON AND OFF PHENOMENON [None]
